FAERS Safety Report 24254680 (Version 4)
Quarter: 2024Q4

REPORT INFORMATION
  Report Type: Report from Study
  Country: CA (occurrence: CA)
  Receive Date: 20240827
  Receipt Date: 20241115
  Transmission Date: 20250115
  Serious: Yes (Other)
  Sender: GLAXOSMITHKLINE
  Company Number: CA-GLAXOSMITHKLINE-CA2024043468

PATIENT

DRUGS (8)
  1. BELIMUMAB [Suspect]
     Active Substance: BELIMUMAB
     Indication: Systemic lupus erythematosus
     Dosage: 200 MG, WE
     Route: 058
     Dates: start: 20210224, end: 202312
  2. BELIMUMAB [Suspect]
     Active Substance: BELIMUMAB
  3. BELIMUMAB [Suspect]
     Active Substance: BELIMUMAB
     Indication: Systemic lupus erythematosus
     Dosage: 200 MG, WE
     Route: 058
     Dates: start: 20240417
  4. SAPHNELO [Suspect]
     Active Substance: ANIFROLUMAB-FNIA
     Indication: Product used for unknown indication
     Dosage: UNK
  5. CELLCEPT [Suspect]
     Active Substance: MYCOPHENOLATE MOFETIL
     Indication: Product used for unknown indication
     Dosage: UNK
  6. HYDROXYCHLOROQUINE [Concomitant]
     Active Substance: HYDROXYCHLOROQUINE
     Indication: Product used for unknown indication
     Dosage: 200 MG, BID
  7. MYCOPHENOLIC ACID [Concomitant]
     Active Substance: MYCOPHENOLIC ACID
     Indication: Product used for unknown indication
     Dosage: 180 MG, BID
  8. MYCOPHENOLIC ACID [Concomitant]
     Active Substance: MYCOPHENOLIC ACID
     Dosage: 1080 MG, BID

REACTIONS (13)
  - Colitis [Recovering/Resolving]
  - Blister [Unknown]
  - Arthritis [Unknown]
  - Arthralgia [Unknown]
  - Oral herpes [Unknown]
  - Stomatitis [Not Recovered/Not Resolved]
  - Nausea [Unknown]
  - Rash [Not Recovered/Not Resolved]
  - Condition aggravated [Unknown]
  - Diarrhoea [Unknown]
  - Fatigue [Not Recovered/Not Resolved]
  - Incorrect dose administered [Unknown]
  - Product use complaint [Unknown]

NARRATIVE: CASE EVENT DATE: 20240801
